FAERS Safety Report 9648444 (Version 2)
Quarter: 2013Q4

REPORT INFORMATION
  Report Type: Spontaneous
  Country: US (occurrence: US)
  Receive Date: 20131028
  Receipt Date: 20131205
  Transmission Date: 20140711
  Serious: No
  Sender: FDA-Public Use
  Company Number: US-BAYER-2013-130373

PATIENT
  Age: 48 Year
  Sex: Female

DRUGS (2)
  1. MIRENA [Suspect]
     Indication: CONTRACEPTION
     Dosage: 20 MCG/24HR, CONT
     Route: 015
     Dates: start: 20130822, end: 20131006
  2. MIRENA [Suspect]
     Indication: MENORRHAGIA

REACTIONS (2)
  - Device expulsion [Recovered/Resolved]
  - Drug ineffective [None]
